FAERS Safety Report 9556289 (Version 2)
Quarter: 2014Q3

REPORT INFORMATION
  Report Type: Spontaneous
  Country: US (occurrence: None)
  Receive Date: 20130815
  Receipt Date: 20140815
  Transmission Date: 20150326
  Serious: Yes (Hospitalization, Other)
  Sender: FDA-Public Use
  Company Number: ADR-2013-00993

PATIENT
  Age: 41 Year
  Sex: Male

DRUGS (1)
  1. BACLOFEN INTRATHECAL [Suspect]
     Active Substance: BACLOFEN
     Indication: MUSCLE SPASTICITY
     Dosage: 1301.7 MCG/DAY

REACTIONS (3)
  - Mental status changes [None]
  - Pyrexia [None]
  - Urosepsis [None]

NARRATIVE: CASE EVENT DATE: 20130605
